FAERS Safety Report 21298879 (Version 4)
Quarter: 2022Q3

REPORT INFORMATION
  Report Type: Report from Study
  Country: CN (occurrence: CN)
  Receive Date: 20220906
  Receipt Date: 20220926
  Transmission Date: 20221027
  Serious: Yes (Hospitalization)
  Sender: FDA-Public Use
  Company Number: CN-NOVARTISPH-NVSC2022CN200047

PATIENT
  Age: 77 Year
  Sex: Male
  Weight: 54 kg

DRUGS (32)
  1. PACLITAXEL [Suspect]
     Active Substance: PACLITAXEL
     Indication: Non-small cell lung cancer metastatic
     Dosage: 171 MG, C1D1
     Route: 042
     Dates: start: 20220602, end: 20220602
  2. PACLITAXEL [Suspect]
     Active Substance: PACLITAXEL
     Dosage: 171 MG, C1D15
     Route: 042
     Dates: start: 20220617, end: 20220617
  3. PACLITAXEL [Suspect]
     Active Substance: PACLITAXEL
     Dosage: 171 MG, C2D1
     Route: 042
     Dates: start: 20220625, end: 20220625
  4. PACLITAXEL [Suspect]
     Active Substance: PACLITAXEL
     Dosage: 171 MG, C2D8
     Route: 042
     Dates: start: 20220703, end: 20220703
  5. PACLITAXEL [Suspect]
     Active Substance: PACLITAXEL
     Dosage: 171 MG, C2D15
     Route: 042
     Dates: start: 20220711, end: 20220711
  6. PACLITAXEL [Suspect]
     Active Substance: PACLITAXEL
     Dosage: 137 MG, C3D1
     Route: 042
     Dates: start: 20220721, end: 20220721
  7. PACLITAXEL [Suspect]
     Active Substance: PACLITAXEL
     Dosage: 137 MG, C3D8
     Route: 042
     Dates: start: 20220729, end: 20220729
  8. PACLITAXEL [Suspect]
     Active Substance: PACLITAXEL
     Dosage: 137 MG, C3D15
     Route: 042
     Dates: start: 20220805, end: 20220805
  9. PACLITAXEL [Suspect]
     Active Substance: PACLITAXEL
     Dosage: 137 MG, C4D1
     Route: 042
     Dates: start: 20220820, end: 20220820
  10. TISLELIZUMAB [Suspect]
     Active Substance: TISLELIZUMAB
     Indication: Non-small cell lung cancer metastatic
     Dosage: 200 MG, C1D1
     Route: 042
     Dates: start: 20220602, end: 20220602
  11. TISLELIZUMAB [Suspect]
     Active Substance: TISLELIZUMAB
     Dosage: 200 MG, C2D1
     Route: 042
     Dates: start: 20220625, end: 20220625
  12. TISLELIZUMAB [Suspect]
     Active Substance: TISLELIZUMAB
     Dosage: 200 MG, C3D1
     Route: 042
     Dates: start: 20220721, end: 20220721
  13. TISLELIZUMAB [Suspect]
     Active Substance: TISLELIZUMAB
     Dosage: 200 MG, C4D1
     Route: 042
     Dates: start: 20220820, end: 20220820
  14. PLACEBO [Suspect]
     Active Substance: UNSPECIFIED INGREDIENT
     Indication: Non-small cell lung cancer metastatic
     Dosage: 900 MG,C1D1
     Route: 042
     Dates: start: 20220602, end: 20220602
  15. PLACEBO [Suspect]
     Active Substance: UNSPECIFIED INGREDIENT
     Dosage: 900 MG,C2D1
     Route: 042
     Dates: start: 20220625, end: 20220625
  16. PLACEBO [Suspect]
     Active Substance: UNSPECIFIED INGREDIENT
     Dosage: 900 MG,C3D1
     Route: 042
     Dates: start: 20220721, end: 20220721
  17. PLACEBO [Suspect]
     Active Substance: UNSPECIFIED INGREDIENT
     Dosage: 900 MG,C4D1
     Route: 042
     Dates: start: 20220820, end: 20220820
  18. ONDANSETRON HYDROCHLORIDE [Concomitant]
     Active Substance: ONDANSETRON HYDROCHLORIDE
     Indication: Product used for unknown indication
     Dosage: UNK
     Route: 065
     Dates: start: 20220630
  19. ACETAMINOPHEN\DIHYDROCODEINE BITARTRATE [Concomitant]
     Active Substance: ACETAMINOPHEN\DIHYDROCODEINE BITARTRATE
     Indication: Product used for unknown indication
     Dosage: UNK
     Route: 065
     Dates: start: 20220630
  20. ALBUTEROL SULFATE [Concomitant]
     Active Substance: ALBUTEROL SULFATE
     Indication: Product used for unknown indication
     Dosage: SOLUTION
     Route: 065
     Dates: start: 20220814, end: 20220819
  21. FINASTERIDE [Concomitant]
     Active Substance: FINASTERIDE
     Indication: Product used for unknown indication
     Dosage: UNK
     Route: 065
     Dates: start: 20220417
  22. OSELTAMIVIR PHOSPHATE [Concomitant]
     Active Substance: OSELTAMIVIR PHOSPHATE
     Indication: Product used for unknown indication
     Dosage: UNK
     Route: 065
     Dates: start: 20220816, end: 20220819
  23. LEUCOGEN [Concomitant]
     Active Substance: LEUCOGEN
     Indication: Product used for unknown indication
     Dosage: UNK
     Route: 065
     Dates: start: 20220702
  24. SODIUM COPPER CHLOROPHYLLIN [Concomitant]
     Active Substance: SODIUM COPPER CHLOROPHYLLIN
     Indication: Product used for unknown indication
     Dosage: UNK
     Route: 065
     Dates: start: 20220702
  25. TAMSULOSIN HYDROCHLORIDE [Concomitant]
     Active Substance: TAMSULOSIN HYDROCHLORIDE
     Indication: Product used for unknown indication
     Dosage: UNK
     Route: 065
     Dates: start: 20220417
  26. DOXOFYLLINE [Concomitant]
     Active Substance: DOXOFYLLINE
     Indication: Product used for unknown indication
     Dosage: UNK
     Route: 065
     Dates: start: 20220814, end: 20220819
  27. ALBUTEROL SULFATE\IPRATROPIUM BROMIDE [Concomitant]
     Active Substance: ALBUTEROL SULFATE\IPRATROPIUM BROMIDE
     Indication: Product used for unknown indication
     Dosage: UNK
     Route: 065
     Dates: start: 20220814, end: 20220819
  28. BUDESONIDE [Concomitant]
     Active Substance: BUDESONIDE
     Indication: Product used for unknown indication
     Dosage: UNK
     Route: 065
     Dates: start: 20220814, end: 20220819
  29. AMBROXOL HYDROCHLORIDE [Concomitant]
     Active Substance: AMBROXOL HYDROCHLORIDE
     Indication: Product used for unknown indication
     Dosage: UNK
     Route: 065
     Dates: start: 20220814, end: 20220819
  30. METHYLPREDNISOLONE SODIUM SUCCINATE [Concomitant]
     Active Substance: METHYLPREDNISOLONE SODIUM SUCCINATE
     Indication: Product used for unknown indication
     Dosage: UNK
     Route: 065
     Dates: start: 20220815, end: 20220819
  31. MOXIFLOXACIN HYDROCHLORIDE [Concomitant]
     Active Substance: MOXIFLOXACIN HYDROCHLORIDE
     Indication: Product used for unknown indication
     Dosage: UNK
     Route: 065
     Dates: start: 20220815, end: 20220819
  32. MONTELUKAST SODIUM [Concomitant]
     Active Substance: MONTELUKAST SODIUM
     Indication: Product used for unknown indication
     Dosage: UNK
     Route: 065
     Dates: start: 20220711

REACTIONS (2)
  - Pneumonia [Recovering/Resolving]
  - Pulmonary embolism [Recovering/Resolving]

NARRATIVE: CASE EVENT DATE: 20220829
